FAERS Safety Report 25299893 (Version 1)
Quarter: 2025Q2

REPORT INFORMATION
  Report Type: Spontaneous
  Country: ES (occurrence: ES)
  Receive Date: 20250512
  Receipt Date: 20250512
  Transmission Date: 20250716
  Serious: Yes (Life-Threatening, Hospitalization, Other)
  Sender: STRIDES
  Company Number: None

PATIENT
  Age: 67 Year
  Sex: Female

DRUGS (6)
  1. CYCLOSPORINE [Suspect]
     Active Substance: CYCLOSPORINE
     Indication: Immunosuppressant drug therapy
     Route: 065
  2. CYCLOSPORINE [Suspect]
     Active Substance: CYCLOSPORINE
     Route: 065
  3. MYCOPHENOLIC ACID [Suspect]
     Active Substance: MYCOPHENOLIC ACID
     Indication: Immunosuppressant drug therapy
     Route: 065
  4. LEVETIRACETAM [Suspect]
     Active Substance: LEVETIRACETAM
     Indication: Generalised tonic-clonic seizure
     Route: 065
  5. METHYLPREDNISOLONE [Suspect]
     Active Substance: METHYLPREDNISOLONE
     Indication: Immunosuppressant drug therapy
     Route: 065
  6. MIDAZOLAM [Concomitant]
     Active Substance: MIDAZOLAM
     Indication: Generalised tonic-clonic seizure
     Route: 042

REACTIONS (13)
  - Atrial fibrillation [Recovered/Resolved]
  - Generalised tonic-clonic seizure [Unknown]
  - Metabolic acidosis [Recovered/Resolved]
  - Depressed level of consciousness [Unknown]
  - Aspiration [Unknown]
  - Cachexia [Unknown]
  - Bradyphrenia [Unknown]
  - Renal function test abnormal [Recovering/Resolving]
  - Malabsorption [Recovering/Resolving]
  - Cryptosporidiosis infection [Recovered/Resolved]
  - Cytomegalovirus infection [Unknown]
  - Aspergillus infection [Recovered/Resolved]
  - Drug ineffective [Unknown]
